FAERS Safety Report 5061637-2 (Version None)
Quarter: 2006Q3

REPORT INFORMATION
  Report Type: 
  Country: None (occurrence: None)
  Receive Date: 20060721
  Receipt Date: 20060710
  Transmission Date: 20061208
  Serious: Yes (Other)
  Sender: FDA-Public Use
  Company Number: 2006080190

PATIENT
  Age: 50 Year
  Sex: Male
  Weight: 61.2356 kg

DRUGS (8)
  1. LYRICA [Suspect]
     Indication: NECK PAIN
     Dosage: 300 MG (75 MG, 4 IN 1 D),
     Dates: start: 20060101, end: 20060601
  2. LYRICA [Suspect]
     Indication: NERVOUS SYSTEM DISORDER
     Dosage: 300 MG (75 MG, 4 IN 1 D),
     Dates: start: 20060101, end: 20060601
  3. PRIMIDONE [Concomitant]
  4. LORTAB [Concomitant]
  5. IBUPROFEN [Concomitant]
  6. ACETAMINOPHEN [Concomitant]
  7. PROTONIX [Concomitant]
  8. HYDROCODONE BITARTRATE [Concomitant]

REACTIONS (11)
  - BALANCE DISORDER [None]
  - COGNITIVE DISORDER [None]
  - CONDITION AGGRAVATED [None]
  - FALL [None]
  - FEELING DRUNK [None]
  - MENTAL DISORDER [None]
  - MUSCLE TWITCHING [None]
  - OBSESSIVE-COMPULSIVE DISORDER [None]
  - PERSONALITY DISORDER [None]
  - SPOUSAL ABUSE [None]
  - SUICIDAL IDEATION [None]
